FAERS Safety Report 6509640-7 (Version None)
Quarter: 2009Q4

REPORT INFORMATION
  Report Type: 
  Country: None (occurrence: None)
  Receive Date: 20091221
  Receipt Date: 20091221
  Transmission Date: 20100525
  Serious: Yes (Death)
  Sender: FDA-Public Use
  Company Number: None

PATIENT
  Sex: Female
  Weight: 47.1 kg

DRUGS (3)
  1. CARBOPLATIN [Suspect]
     Dosage: 1120 MG
  2. TAXOL [Suspect]
     Dosage: 672 MG
  3. WARFARIN [Concomitant]

REACTIONS (3)
  - CARDIAC ARREST [None]
  - HAEMATEMESIS [None]
  - PULMONARY EMBOLISM [None]
